FAERS Safety Report 12552059 (Version 1)
Quarter: 2016Q3

REPORT INFORMATION
  Report Type: Spontaneous
  Country: US (occurrence: None)
  Receive Date: 20160712
  Receipt Date: 20160712
  Transmission Date: 20161109
  Serious: Yes (Hospitalization, Other)
  Sender: FDA-Public Use
  Company Number: None

PATIENT
  Age: 58 Year
  Sex: Male
  Weight: 128 kg

DRUGS (1)
  1. ISAVUCONAZONIUM [Suspect]
     Active Substance: ISAVUCONAZONIUM
     Indication: OSTEOMYELITIS
     Route: 042
     Dates: start: 20160706, end: 20160707

REACTIONS (2)
  - Cardio-respiratory arrest [None]
  - Respiratory disorder [None]

NARRATIVE: CASE EVENT DATE: 20160707
